FAERS Safety Report 10763826 (Version 1)
Quarter: 2015Q1

REPORT INFORMATION
  Report Type: Spontaneous
  Country: GB (occurrence: US)
  Receive Date: 20150204
  Receipt Date: 20150204
  Transmission Date: 20150721
  Serious: No
  Sender: FDA-Public Use
  Company Number: GB-009507513-1502USA001725

PATIENT

DRUGS (1)
  1. PROPECIA [Suspect]
     Active Substance: FINASTERIDE
     Route: 048

REACTIONS (1)
  - Adverse event [Unknown]
